FAERS Safety Report 19272312 (Version 2)
Quarter: 2021Q3

REPORT INFORMATION
  Report Type: Report from Study
  Country: CA (occurrence: CA)
  Receive Date: 20210518
  Receipt Date: 20210923
  Transmission Date: 20211014
  Serious: Yes (Other)
  Sender: FDA-Public Use
  Company Number: CA-TAKEDA-2021TUS022580

PATIENT
  Age: 40 Year
  Sex: Female
  Weight: 61 kg

DRUGS (16)
  1. VEDOLIZUMAB [Suspect]
     Active Substance: VEDOLIZUMAB
     Indication: CROHN^S DISEASE
     Dosage: 300 MILLIGRAM
     Route: 042
     Dates: start: 20160720
  2. VEDOLIZUMAB [Suspect]
     Active Substance: VEDOLIZUMAB
     Dosage: 300 MILLIGRAM, Q4WEEKS
     Route: 042
     Dates: start: 20190212
  3. CELEBREX [Concomitant]
     Active Substance: CELECOXIB
     Dosage: 200 MILLIGRAM, BID
  4. VEDOLIZUMAB [Suspect]
     Active Substance: VEDOLIZUMAB
     Dosage: 300 MILLIGRAM, Q4WEEKS
     Route: 042
     Dates: start: 201804
  5. ZOPICLONE [Concomitant]
     Active Substance: ZOPICLONE
     Dosage: UNK
  6. HYDROMORPH CONTIN [Concomitant]
     Active Substance: HYDROMORPHONE
     Dosage: UNK
  7. METHADONE [Concomitant]
     Active Substance: METHADONE HYDROCHLORIDE
     Dosage: 60 MILLIGRAM, QD
  8. PREDNISONE. [Concomitant]
     Active Substance: PREDNISONE
     Dosage: 20 MILLIGRAM
  9. PROZAC [Concomitant]
     Active Substance: FLUOXETINE HYDROCHLORIDE
     Dosage: UNK UNK, QD
  10. CLONAZEPAM. [Concomitant]
     Active Substance: CLONAZEPAM
     Dosage: 0.5 MILLIGRAM, QID
  11. DILAUDID [Concomitant]
     Active Substance: HYDROMORPHONE HYDROCHLORIDE
     Dosage: UNK
  12. VEDOLIZUMAB [Suspect]
     Active Substance: VEDOLIZUMAB
     Dosage: 300 MILLIGRAM
     Route: 042
  13. IMURAN [Concomitant]
     Active Substance: AZATHIOPRINE
     Dosage: UNK UNK, QD
  14. VEDOLIZUMAB [Suspect]
     Active Substance: VEDOLIZUMAB
     Dosage: 300 MILLIGRAM, Q4WEEKS
     Route: 042
     Dates: start: 20210402
  15. PREVACID [Concomitant]
     Active Substance: LANSOPRAZOLE
     Dosage: 30 MILLIGRAM, BID
  16. GABAPENTIN. [Concomitant]
     Active Substance: GABAPENTIN
     Dosage: UNK

REACTIONS (8)
  - Obsessive-compulsive disorder [Unknown]
  - Vaginal discharge [Unknown]
  - Pregnancy [Unknown]
  - Osteoarthritis [Unknown]
  - Off label use [Unknown]
  - Diversion colitis [Unknown]
  - Anxiety [Unknown]
  - Hepatitis C [Unknown]

NARRATIVE: CASE EVENT DATE: 201804
